FAERS Safety Report 8997144 (Version 1)
Quarter: 2013Q1

REPORT INFORMATION
  Report Type: Spontaneous
  Country: US (occurrence: US)
  Receive Date: 20130104
  Receipt Date: 20130104
  Transmission Date: 20140127
  Serious: Yes (Hospitalization)
  Sender: FDA-Public Use
  Company Number: US-ABBOTT-13P-163-1030340-00

PATIENT
  Sex: 0

DRUGS (6)
  1. HUMIRA [Suspect]
     Indication: CROHN^S DISEASE
     Dosage: 2 INJECTIONS
  2. PERCOCET [Suspect]
     Indication: PRODUCT USED FOR UNKNOWN INDICATION
  3. ANESTHETICS [Suspect]
     Indication: SIGMOIDOSCOPY
  4. ANESTHETICS [Suspect]
     Indication: ANAESTHESIA
  5. PREDNISONE [Concomitant]
     Indication: CROHN^S DISEASE
  6. IMURAN [Concomitant]
     Indication: CROHN^S DISEASE

REACTIONS (4)
  - Gastrointestinal disorder [Unknown]
  - Abdominal abscess [Unknown]
  - Drug ineffective [Unknown]
  - Anaesthetic complication [Unknown]
